FAERS Safety Report 4264291-2 (Version None)
Quarter: 2004Q1

REPORT INFORMATION
  Report Type: 
  Country: None (occurrence: None)
  Receive Date: 20040105
  Receipt Date: 20031218
  Transmission Date: 20041129
  Serious: Yes (Hospitalization)
  Sender: FDA-Public Use
  Company Number: 162475

PATIENT
  Age: 39 Year
  Sex: Male
  Weight: 100 kg

DRUGS (3)
  1. AVONEX [Suspect]
     Indication: MULTIPLE SCLEROSIS
     Dosage: 30 MCG QW IM
     Route: 030
     Dates: start: 19990101, end: 20020101
  2. MANTADIX [Concomitant]
  3. LIORESAL [Concomitant]

REACTIONS (7)
  - ABASIA [None]
  - GRANULOMA [None]
  - HYPERSENSITIVITY [None]
  - OEDEMA PERIPHERAL [None]
  - PAIN [None]
  - PHLEBITIS [None]
  - SKIN ULCER [None]
